FAERS Safety Report 20986115 (Version 1)
Quarter: 2022Q2

REPORT INFORMATION
  Report Type: Spontaneous
  Country: US (occurrence: US)
  Receive Date: 20220621
  Receipt Date: 20220621
  Transmission Date: 20220721
  Serious: Yes (Hospitalization, Other)
  Sender: FDA-Public Use
  Company Number: US-BRISTOL-MYERS SQUIBB COMPANY-2022-053986

PATIENT
  Age: 80 Year
  Sex: Male

DRUGS (7)
  1. SPRYCEL [Suspect]
     Active Substance: DASATINIB
     Indication: Product used for unknown indication
     Dosage: DOSE : 100MG, NOW 80MG;     FREQ : DAILY
  2. LOSARTAN [Concomitant]
     Active Substance: LOSARTAN
  3. WARFARIN [Concomitant]
     Active Substance: WARFARIN
  4. LASIX [Concomitant]
     Active Substance: FUROSEMIDE
  5. VITAMINS NOS [Concomitant]
     Active Substance: VITAMINS
  6. FISH OIL [Concomitant]
     Active Substance: FISH OIL
  7. VITAMIN D3 [Concomitant]
     Active Substance: CHOLECALCIFEROL

REACTIONS (4)
  - Pulmonary oedema [Unknown]
  - Fatigue [Unknown]
  - White blood cell count increased [Unknown]
  - Treatment noncompliance [Unknown]
